FAERS Safety Report 6293639-2 (Version None)
Quarter: 2009Q3

REPORT INFORMATION
  Report Type: 
  Country: None (occurrence: None)
  Receive Date: 20090729
  Receipt Date: 20090717
  Transmission Date: 20100115
  Serious: Yes (Hospitalization, Other)
  Sender: FDA-Public Use
  Company Number: PAR_03082_2009

PATIENT
  Age: 25 Year
  Sex: Male

DRUGS (2)
  1. IBUPROFEN [Suspect]
     Indication: HEADACHE
     Dosage: (DF)
  2. IBUPROFEN [Suspect]
     Indication: MYALGIA
     Dosage: (DF)

REACTIONS (2)
  - EOSINOPHIL COUNT INCREASED [None]
  - PNEUMONIA [None]
